FAERS Safety Report 8544644-4 (Version None)
Quarter: 2012Q3

REPORT INFORMATION
  Report Type: 
  Country: None (occurrence: None)
  Receive Date: 20120727
  Receipt Date: 20120719
  Transmission Date: 20120928
  Serious: Yes (Other)
  Sender: FDA-Public Use
  Company Number: JP-SANOFI-AVENTIS-2012SA052897

PATIENT
  Age: 68 Year
  Sex: Female

DRUGS (10)
  1. LIPITOR [Concomitant]
  2. REBAMIPIDE [Concomitant]
  3. PURSENNID /SCH/ [Concomitant]
  4. CANDESARTAN [Concomitant]
  5. LOXONIN [Concomitant]
  6. MAGNESIUM OXIDE [Concomitant]
  7. DORAL [Concomitant]
  8. AZULFIDINE [Concomitant]
  9. PLAVIX [Suspect]
     Route: 048
     Dates: end: 20120704
  10. ACETAMINOPHEN AND TRAMADOL HCL [Suspect]
     Route: 048
     Dates: start: 20120301

REACTIONS (1)
  - URINARY RETENTION [None]
